FAERS Safety Report 4668844-9 (Version None)
Quarter: 2005Q2

REPORT INFORMATION
  Report Type: 
  Country: None (occurrence: None)
  Receive Date: 20050518
  Receipt Date: 20050427
  Transmission Date: 20051028
  Serious: Yes (Hospitalization)
  Sender: FDA-Public Use
  Company Number: WAES 0504GBR00190

PATIENT
  Age: 72 Year
  Sex: Female

DRUGS (6)
  1. COZAAR [Suspect]
     Indication: CARDIAC FAILURE CONGESTIVE
     Dosage: PO
     Route: 048
     Dates: start: 20020408, end: 20030430
  2. COZAAR [Suspect]
     Indication: CARDIAC FAILURE CONGESTIVE
     Dosage: PO
     Route: 048
     Dates: start: 19980501
  3. WARFARIN SODIUM [Suspect]
     Indication: CARDIAC FAILURE
     Dates: start: 19980218
  4. CARDIOL                    (CARVEDILOL) [Concomitant]
  5. FUROSEMIDE [Concomitant]
  6. PRAVASTATIN SODIUM [Concomitant]

REACTIONS (1)
  - HAEMATEMESIS [None]
